FAERS Safety Report 11021808 (Version 1)
Quarter: 2015Q2

REPORT INFORMATION
  Report Type: Spontaneous
  Country: CH (occurrence: CH)
  Receive Date: 20150413
  Receipt Date: 20150413
  Transmission Date: 20150821
  Serious: Yes (Death, Other)
  Sender: FDA-Public Use
  Company Number: CH-PFIZER INC-2015121755

PATIENT
  Age: 57 Year
  Sex: Female
  Weight: 90 kg

DRUGS (20)
  1. SYMBICORT [Concomitant]
     Active Substance: BUDESONIDE\FORMOTEROL FUMARATE DIHYDRATE
     Dosage: 1 DF (200/6 MCG), 2X/DAY
     Route: 055
     Dates: start: 20150213
  2. DISOPRIVAN [Concomitant]
     Active Substance: PROPOFOL
     Dosage: 1 %, UNK
     Route: 042
     Dates: start: 20150216
  3. DOSPIR [Suspect]
     Active Substance: ALBUTEROL SULFATE\IPRATROPIUM BROMIDE
     Dosage: 1MG/5MG 6X/DAY
     Route: 055
     Dates: start: 20150213
  4. TORASEMIDE [Concomitant]
     Active Substance: TORSEMIDE
     Dosage: 10 MG, UNK
     Route: 048
     Dates: start: 20150215
  5. PREDNISON [Suspect]
     Active Substance: PREDNISONE
     Indication: CHRONIC OBSTRUCTIVE PULMONARY DISEASE
     Dosage: 50 MG, DAILY
     Route: 048
     Dates: start: 20150213
  6. ASPEGIC [Concomitant]
     Active Substance: ASPIRIN DL-LYSINE
     Dosage: 250 MG, UNK
     Route: 042
     Dates: start: 20150213
  7. ASPIRIN. [Concomitant]
     Active Substance: ASPIRIN
     Dosage: 100 MG, PER DAY
     Route: 048
     Dates: start: 20150214
  8. KLACID [Concomitant]
     Active Substance: CLARITHROMYCIN
     Dosage: 500 MG, SINGLE
     Route: 048
     Dates: start: 20150213, end: 20150213
  9. FRAGMIN [Concomitant]
     Active Substance: DALTEPARIN SODIUM
     Dosage: 5000 IU, 1X/DAY
     Route: 058
     Dates: start: 20150213, end: 20150213
  10. DOMPERIDONE [Concomitant]
     Active Substance: DOMPERIDONE
     Dosage: 1 DF, SINGLE
     Route: 048
     Dates: start: 20150213
  11. FENTANYL. [Concomitant]
     Active Substance: FENTANYL
     Dosage: UNK
     Route: 040
     Dates: start: 20150216
  12. NITROGLYCERIN. [Concomitant]
     Active Substance: NITROGLYCERIN
     Dosage: 10 MG, 1X/DAY
     Route: 062
     Dates: start: 20150213
  13. FRAGMIN [Concomitant]
     Active Substance: DALTEPARIN SODIUM
     Dosage: 2500 IU, 1X/DAY
  14. ESMERON [Concomitant]
     Active Substance: ROCURONIUM BROMIDE
     Dosage: 90 MG, SINGLE
     Route: 042
     Dates: start: 20150216
  15. PARACETAMOL [Concomitant]
     Active Substance: ACETAMINOPHEN
     Dosage: 1 G, SINGLE
     Dates: start: 20150213, end: 20150213
  16. TAMIFLU [Suspect]
     Active Substance: OSELTAMIVIR PHOSPHATE
     Indication: INFLUENZA
     Dosage: 75 MG, 2X/DAY
     Route: 048
     Dates: start: 20150213, end: 20150217
  17. SOLU-MEDROL [Concomitant]
     Active Substance: METHYLPREDNISOLONE SODIUM SUCCINATE
     Dosage: 1 DF, UNK
     Route: 042
     Dates: start: 20150213, end: 20150213
  18. TAZOBAC [Suspect]
     Active Substance: PIPERACILLIN SODIUM\TAZOBACTAM SODIUM
     Indication: INFLUENZA
     Dosage: 4.5 G, 3X/DAY
     Route: 042
     Dates: start: 20150213, end: 20150216
  19. MORPHIN [Concomitant]
     Active Substance: MORPHINE
     Dosage: 2 MG, SINGLE
     Route: 048
     Dates: start: 20150213, end: 20150213
  20. EPHEDRIN [Concomitant]
     Active Substance: EPHEDRINE HYDROCHLORIDE
     Dosage: 20 MG, UNK
     Route: 042
     Dates: start: 20150216

REACTIONS (3)
  - Seizure [Not Recovered/Not Resolved]
  - Metabolic encephalopathy [Fatal]
  - Hypoglycaemia [Recovered/Resolved]

NARRATIVE: CASE EVENT DATE: 20150216
